FAERS Safety Report 5121975-1 (Version None)
Quarter: 2006Q4

REPORT INFORMATION
  Report Type: 
  Country: None (occurrence: None)
  Receive Date: 20061003
  Receipt Date: 20060921
  Transmission Date: 20070319
  Serious: Yes (Hospitalization, Congenital Anomaly, Other)
  Sender: FDA-Public Use
  Company Number: 2005093363

PATIENT
  Sex: Female
  Weight: 1.36 kg

DRUGS (4)
  1. DEPO-PROVERA SUSPENSION/INJ [Suspect]
     Indication: CONTRACEPTION
     Dosage: SEE IMAGE
     Dates: start: 20020101, end: 20020101
  2. DEPO-PROVERA SUSPENSION/INJ [Suspect]
     Indication: CONTRACEPTION
     Dosage: SEE IMAGE
     Dates: start: 20040812, end: 20040812
  3. NORLEVO            (LEVONORGESTREL) [Concomitant]
  4. LOSEC   (OMEPRAZOLE) [Concomitant]

REACTIONS (30)
  - AMNIOTIC FLUID VOLUME DECREASED [None]
  - APNOEA [None]
  - BODY TEMPERATURE DECREASED [None]
  - CAESAREAN SECTION [None]
  - CENTRAL NERVOUS SYSTEM INFECTION [None]
  - CONGENITAL CENTRAL NERVOUS SYSTEM ANOMALY [None]
  - CYANOSIS NEONATAL [None]
  - DRUG EXPOSURE BEFORE PREGNANCY [None]
  - DRUG EXPOSURE DURING PREGNANCY [None]
  - EAR DISORDER [None]
  - FEVER NEONATAL [None]
  - FOETAL GROWTH RETARDATION [None]
  - FOETAL HEART RATE DECELERATION [None]
  - FONTANELLE DEPRESSED [None]
  - GROWTH RETARDATION [None]
  - HEART RATE INCREASED [None]
  - HYPERTONIA [None]
  - INFANTILE APNOEIC ATTACK [None]
  - LIVER PALPABLE SUBCOSTAL [None]
  - MICROCEPHALY [None]
  - MUSCLE SPASMS [None]
  - NEONATAL DISORDER [None]
  - NEONATAL RESPIRATORY ARREST [None]
  - PREMATURE BABY [None]
  - PULMONARY ARTERY STENOSIS CONGENITAL [None]
  - PYREXIA [None]
  - REFUSAL OF TREATMENT BY RELATIVE [None]
  - RESTLESSNESS [None]
  - SMALL FOR DATES BABY [None]
  - UMBILICAL HERNIA [None]
